FAERS Safety Report 4693103-8 (Version None)
Quarter: 2005Q2

REPORT INFORMATION
  Report Type: 
  Country: None (occurrence: None)
  Receive Date: 20050617
  Receipt Date: 20050610
  Transmission Date: 20051028
  Serious: Yes (Hospitalization, Other)
  Sender: FDA-Public Use
  Company Number: 200514935US

PATIENT
  Sex: Male

DRUGS (9)
  1. GLYBURIDE [Suspect]
     Dosage: DOSE: UNK
     Dates: end: 20050608
  2. NORVASC [Concomitant]
     Dosage: DOSE: UNK
  3. ASPIRIN [Concomitant]
     Dosage: DOSE: UNK
  4. ATENOLOL [Concomitant]
     Dosage: DOSE: UNK
  5. PHOSLO [Concomitant]
     Dosage: DOSE: UNK
  6. LISINOPRIL [Concomitant]
     Dosage: DOSE: UNK
  7. NEPHROCAPS [Concomitant]
     Dosage: DOSE: UNK
  8. RENAGEL [Concomitant]
     Dosage: DOSE: UNK
  9. IMODIUM [Concomitant]
     Dosage: DOSE: 1 DOSE

REACTIONS (2)
  - HOSPITALISATION [None]
  - HYPOGLYCAEMIA [None]
